FAERS Safety Report 5266250-X (Version None)
Quarter: 2007Q1

REPORT INFORMATION
  Report Type: 
  Country: None (occurrence: None)
  Receive Date: 20070315
  Receipt Date: 20070306
  Transmission Date: 20070707
  Serious: Yes (Life-Threatening, Disabling, Other)
  Sender: FDA-Public Use
  Company Number: GB-GLAXOSMITHKLINE-B0461965A

PATIENT
  Age: 25 Year
  Sex: Male

DRUGS (2)
  1. PAROXETINE HCL [Suspect]
     Indication: DEPRESSION
     Route: 048
     Dates: start: 20020501, end: 20031001
  2. ZOPICLONE [Suspect]
     Indication: SLEEP DISORDER
     Route: 048
     Dates: start: 20001001, end: 20030901

REACTIONS (12)
  - AGGRESSION [None]
  - AMNESIA [None]
  - DEPENDENCE [None]
  - DRUG WITHDRAWAL SYNDROME [None]
  - HEADACHE [None]
  - HOMICIDE [None]
  - HYPERHIDROSIS [None]
  - IMPRISONMENT [None]
  - NAUSEA [None]
  - NIGHTMARE [None]
  - SLEEP WALKING [None]
  - TREMOR [None]
